FAERS Safety Report 8580857 (Version 4)
Quarter: 2012Q4

REPORT INFORMATION
  Report Type: 
  Country: US (occurrence: US)
  Receive Date: 20120525
  Receipt Date: 20121016
  Transmission Date: 20130627
  Serious: Yes (Hospitalization, Other)
  Sender: FDA-Public Use
  Company Number: US-PFIZER INC-2012126347

PATIENT
  Age: 56 Year
  Sex: Female
  Weight: 54 kg

DRUGS (13)
  1. LIPITOR [Suspect]
     Indication: BLOOD CHOLESTEROL INCREASED
     Dosage: 20 mg, 1x/day
     Route: 048
  2. LOPID [Suspect]
     Indication: BLOOD CHOLESTEROL INCREASED
     Dosage: 600 mg, 1x/day
     Route: 048
  3. RISPERIDONE [Suspect]
     Indication: SLEEP DISORDER
     Dosage: 0.5 mg, 1x/day
     Dates: start: 2012
  4. NICOTINE [Concomitant]
     Indication: SMOKING CESSATION THERAPY
     Dosage: UNK
  5. SERTRALINE [Concomitant]
     Dosage: 50 mg, daily
     Dates: start: 2012
  6. TRAMADOL [Concomitant]
     Indication: PAIN
     Dosage: 50 mg, UNK
     Dates: start: 2012
  7. LEVOXYL [Concomitant]
     Indication: THYROID DISORDER
     Dosage: 88 ug, UNK
  8. SYNTHROID [Concomitant]
     Indication: HYPOTHYROIDISM
     Dosage: UNK
  9. POTASSIUM [Concomitant]
     Dosage: UNK
  10. POTASSIUM [Concomitant]
     Dosage: 500 mg, UNK
  11. ALPRAZOLAM [Concomitant]
     Indication: SLEEP DISORDER
     Dosage: UNK, daily
  12. VITAMIN D [Concomitant]
     Dosage: UNK
  13. VITAMIN B12 [Concomitant]
     Dosage: UNK

REACTIONS (13)
  - Intracranial aneurysm [Unknown]
  - Dyspepsia [Unknown]
  - Skin discolouration [Unknown]
  - Coma [Unknown]
  - Nervous system disorder [Unknown]
  - Pharyngeal neoplasm [Unknown]
  - Weight decreased [Unknown]
  - Memory impairment [Unknown]
  - Contusion [Unknown]
  - Blister [Unknown]
  - Abdominal discomfort [Unknown]
  - Vomiting [Unknown]
  - Nausea [Unknown]
